FAERS Safety Report 17830225 (Version 1)
Quarter: 2020Q2

REPORT INFORMATION
  Report Type: Spontaneous
  Country: US (occurrence: US)
  Receive Date: 20200527
  Receipt Date: 20200527
  Transmission Date: 20200714
  Serious: No
  Sender: FDA-Public Use
  Company Number: US-BEH-2020117642

PATIENT
  Sex: Female

DRUGS (18)
  1. ACETAMINOPHEN. [Concomitant]
     Active Substance: ACETAMINOPHEN
  2. LATANOPROST. [Concomitant]
     Active Substance: LATANOPROST
  3. LETROZOLE. [Concomitant]
     Active Substance: LETROZOLE
  4. LEVOTHYROXINE. [Concomitant]
     Active Substance: LEVOTHYROXINE
  5. SODIUM CHLORIDE. [Concomitant]
     Active Substance: SODIUM CHLORIDE
  6. HEPARIN [Concomitant]
     Active Substance: HEPARIN SODIUM
  7. SINGULAIR [Concomitant]
     Active Substance: MONTELUKAST SODIUM
  8. PRIVIGEN [Suspect]
     Active Substance: HUMAN IMMUNOGLOBULIN G
     Indication: DRUG THERAPY
     Dosage: 5 GRAM (50ML)
     Route: 065
  9. FOLIC ACID. [Concomitant]
     Active Substance: FOLIC ACID
  10. ACETAMINOPHEN;HYDROCODONE [Concomitant]
     Active Substance: ACETAMINOPHEN\HYDROCODONE
  11. CYANOCOBALAMIN. [Concomitant]
     Active Substance: CYANOCOBALAMIN
  12. ETHAMBUTOL HCL [Concomitant]
     Active Substance: ETHAMBUTOL HYDROCHLORIDE
  13. PAXIL [PIROXICAM] [Concomitant]
     Active Substance: PIROXICAM
  14. DIPHENHYDRAMINE. [Concomitant]
     Active Substance: DIPHENHYDRAMINE
  15. DICYCLOMINE HCL [Concomitant]
     Active Substance: DICYCLOMINE HYDROCHLORIDE
  16. AZITHROMYCIN ANHYDROUS. [Concomitant]
     Active Substance: AZITHROMYCIN ANHYDROUS
  17. MOBIC [Concomitant]
     Active Substance: MELOXICAM
  18. PROTONIX [OMEPRAZOLE] [Concomitant]
     Active Substance: OMEPRAZOLE

REACTIONS (3)
  - Product use in unapproved indication [Unknown]
  - No adverse event [Unknown]
  - Fatigue [Recovered/Resolved]
